FAERS Safety Report 19461208 (Version 1)
Quarter: 2021Q2

REPORT INFORMATION
  Report Type: Spontaneous
  Country: US (occurrence: US)
  Receive Date: 20210625
  Receipt Date: 20210625
  Transmission Date: 20210717
  Serious: No
  Sender: FDA-Public Use
  Company Number: US-JNJFOC-20210634107

PATIENT
  Age: 47 Year
  Sex: Male

DRUGS (1)
  1. MENS ROGAINE EXTRA STRENGTH [Suspect]
     Active Substance: MINOXIDIL
     Indication: ALOPECIA
     Dosage: DOSE: IT WAS A QUARTER OF A DROP
     Route: 065
     Dates: start: 202106

REACTIONS (4)
  - Application site pruritus [Recovering/Resolving]
  - Incorrect dose administered [Unknown]
  - Application site scab [Recovering/Resolving]
  - Application site erythema [Recovered/Resolved]

NARRATIVE: CASE EVENT DATE: 202106
